FAERS Safety Report 7867802-0 (Version None)
Quarter: 2011Q4

REPORT INFORMATION
  Report Type: 
  Country: None (occurrence: None)
  Receive Date: 20111028
  Receipt Date: 20111017
  Transmission Date: 20120403
  Serious: Yes (Hospitalization)
  Sender: FDA-Public Use
  Company Number: JP-ALLERGAN-1114153US

PATIENT
  Age: 71 Year
  Sex: Male

DRUGS (8)
  1. LANTUS [Concomitant]
  2. OLMESARTAN MEDOXOMIL [Concomitant]
     Dosage: UNK
  3. LUMIGAN [Suspect]
     Indication: NORMAL TENSION GLAUCOMA
     Dosage: 1 GTT, QD
     Route: 047
     Dates: start: 20110622
  4. HUMALOG [Concomitant]
     Dosage: UNK
  5. PRAVASTATIN SODIUM [Concomitant]
     Dosage: UNK
  6. NIZATIDINE [Concomitant]
     Dosage: 75 MG
  7. ISALON [Concomitant]
     Dosage: UNK
  8. KAMOSTAAL [Concomitant]
     Dosage: UNK

REACTIONS (2)
  - OCULAR HYPERAEMIA [None]
  - DIABETES MELLITUS [None]
